FAERS Safety Report 8069632-6 (Version None)
Quarter: 2012Q1

REPORT INFORMATION
  Report Type: 
  Country: None (occurrence: None)
  Receive Date: 20120125
  Receipt Date: 20120120
  Transmission Date: 20120608
  Serious: Yes (Death)
  Sender: FDA-Public Use
  Company Number: JP-SANOFI-AVENTIS-2012SA004819

PATIENT
  Age: 75 Year
  Sex: Male

DRUGS (2)
  1. PREDNISOLONE [Concomitant]
     Dates: start: 20111228
  2. TAXOTERE [Suspect]
     Dosage: STRENGTH: 80 MG
     Route: 065
     Dates: start: 20111228

REACTIONS (1)
  - INTERSTITIAL LUNG DISEASE [None]
